FAERS Safety Report 21210276 (Version 3)
Quarter: 2022Q3

REPORT INFORMATION
  Report Type: Report from Study
  Country: NL (occurrence: NL)
  Receive Date: 20220814
  Receipt Date: 20220924
  Transmission Date: 20221026
  Serious: Yes (Death, Other)
  Sender: FDA-Public Use
  Company Number: NL-ABBVIE-22K-114-4502799-00

PATIENT
  Age: 6 Year
  Sex: Female

DRUGS (3)
  1. VENETOCLAX [Suspect]
     Active Substance: VENETOCLAX
     Indication: Acute myeloid leukaemia
     Dosage: 800 MG, ADULT EQUIVALENT, INTERMITTENT DOSING, 10 DAYS
     Route: 048
     Dates: start: 20220626, end: 20220703
  2. CYCLOPHOSPHAMIDE [Suspect]
     Active Substance: CYCLOPHOSPHAMIDE
     Indication: Acute myeloid leukaemia
     Route: 065
  3. TOPOTECAN HYDROCHLORIDE [Suspect]
     Active Substance: TOPOTECAN HYDROCHLORIDE
     Indication: Acute myeloid leukaemia
     Route: 065

REACTIONS (5)
  - Death [Fatal]
  - Neuroblastoma recurrent [Not Recovered/Not Resolved]
  - Off label use [Recovered/Resolved]
  - Alanine aminotransferase increased [Unknown]
  - Aspartate aminotransferase increased [Unknown]

NARRATIVE: CASE EVENT DATE: 20220101
